FAERS Safety Report 6358588-X (Version None)
Quarter: 2009Q3

REPORT INFORMATION
  Report Type: 
  Country: None (occurrence: None)
  Receive Date: 20090916
  Receipt Date: 20090909
  Transmission Date: 20100115
  Serious: Yes (Hospitalization)
  Sender: FDA-Public Use
  Company Number: GB-MERCK-0909GBR00024

PATIENT
  Age: 55 Year
  Sex: Female
  Weight: 85 kg

DRUGS (13)
  1. FOSAMAX [Suspect]
     Indication: PROPHYLAXIS
     Route: 048
  2. LENALIDOMIDE [Suspect]
     Indication: MULTIPLE MYELOMA
     Route: 048
     Dates: start: 20090720, end: 20090803
  3. LENALIDOMIDE [Suspect]
     Route: 048
  4. LENALIDOMIDE [Suspect]
     Route: 048
  5. LENALIDOMIDE [Suspect]
     Route: 065
  6. AMITRIPTYLINE HYDROCHLORIDE [Concomitant]
     Indication: PAIN
     Route: 065
  7. ASPIRIN [Concomitant]
     Indication: THROMBOSIS PROPHYLAXIS
     Route: 048
     Dates: start: 20090720
  8. DEXAMETHASONE [Concomitant]
     Indication: MULTIPLE MYELOMA
     Route: 048
  9. METOCLOPRAMIDE [Concomitant]
     Indication: PROPHYLAXIS OF NAUSEA AND VOMITING
     Route: 065
  10. OMEPRAZOLE [Concomitant]
     Indication: PROPHYLAXIS
     Route: 065
  11. BUDESONIDE AND FORMOTEROL FUMARATE [Concomitant]
     Indication: ASTHMA
     Route: 065
  12. TRAMADOL HYDROCHLORIDE [Concomitant]
     Indication: PAIN
     Route: 065
  13. ALBUTEROL SULFATE [Concomitant]
     Indication: ASTHMA
     Route: 065

REACTIONS (4)
  - BLOOD CREATININE INCREASED [None]
  - DEHYDRATION [None]
  - HYPOCALCAEMIA [None]
  - RENAL FAILURE ACUTE [None]
